FAERS Safety Report 21375497 (Version 1)
Quarter: 2022Q3

REPORT INFORMATION
  Report Type: Spontaneous
  Country: DE (occurrence: DE)
  Receive Date: 20220926
  Receipt Date: 20220926
  Transmission Date: 20221027
  Serious: Yes (Hospitalization)
  Sender: FDA-Public Use
  Company Number: DE-NOVARTISPH-NVSC2022DE214526

PATIENT
  Age: 39 Year
  Sex: Female
  Weight: 76 kg

DRUGS (7)
  1. CLINDAMYCIN [Suspect]
     Active Substance: CLINDAMYCIN
     Indication: Product used for unknown indication
     Dosage: 600 MG, TID (1-1-1-0, TABLETTEN)
     Route: 048
  2. ENOXAPARIN [Suspect]
     Active Substance: ENOXAPARIN
     Indication: Product used for unknown indication
     Dosage: 80 MG, BID (1-0-1-0, FERTIGSPRITZEN)
     Route: 058
  3. OMEPRAZOLE [Concomitant]
     Active Substance: OMEPRAZOLE
     Indication: Product used for unknown indication
     Dosage: 20 MG, QD (1-0-0-0, TABLETTEN)
     Route: 048
  4. TRAMADOL [Concomitant]
     Active Substance: TRAMADOL
     Indication: Product used for unknown indication
     Dosage: 100 MG, QD (0-0-1-0)
     Route: 048
  5. TRAMADOL [Concomitant]
     Active Substance: TRAMADOL
     Dosage: 50 MG, QD ( 0-0-1-0)
     Route: 048
  6. VITAMIN D [Concomitant]
     Active Substance: VITAMIN D NOS
     Indication: Product used for unknown indication
     Dosage: 1000 IE, QD (1-0-0-0)
     Route: 048
  7. METAMIZOLE [Concomitant]
     Active Substance: METAMIZOLE
     Indication: Product used for unknown indication
     Dosage: UNK UNK, PRN (BEI BEDARF, TROPFEN)
     Route: 048

REACTIONS (4)
  - Mucosal haemorrhage [Unknown]
  - Haematochezia [Unknown]
  - Pain [Unknown]
  - Diarrhoea [Unknown]
